FAERS Safety Report 9531017 (Version 1)
Quarter: 2013Q3

REPORT INFORMATION
  Report Type: Spontaneous
  Country: US (occurrence: None)
  Receive Date: 20130916
  Receipt Date: 20130916
  Transmission Date: 20140515
  Serious: Yes (Life-Threatening)
  Sender: FDA-Public Use
  Company Number: None

PATIENT
  Age: 55 Year
  Sex: Male
  Weight: 134.72 kg

DRUGS (3)
  1. XARELTO [Suspect]
     Indication: THROMBOSIS PROPHYLAXIS
     Route: 048
     Dates: start: 20130910, end: 20130911
  2. TRANEXAMIC ACID [Suspect]
     Route: 042
     Dates: start: 20130909, end: 20130909
  3. NAPROXEN [Concomitant]

REACTIONS (2)
  - Cardiac arrest [None]
  - Pulmonary embolism [None]
